FAERS Safety Report 15866361 (Version 15)
Quarter: 2023Q1

REPORT INFORMATION
  Report Type: Spontaneous
  Country: US (occurrence: US)
  Receive Date: 20190125
  Receipt Date: 20230112
  Transmission Date: 20230418
  Serious: Yes (Other)
  Sender: FDA-Public Use
  Company Number: US-PFIZER INC-2019033104

PATIENT
  Age: 68 Year
  Sex: Female
  Weight: 63.05 kg

DRUGS (7)
  1. PREMARIN [Suspect]
     Active Substance: ESTROGENS, CONJUGATED
     Indication: Hot flush
     Dosage: 1 DF, DAILY (TAKING ONE A DAY)
  2. PREMARIN [Suspect]
     Active Substance: ESTROGENS, CONJUGATED
     Indication: Hormone replacement therapy
     Dosage: 0.625 MG, UNK (1 EVERY 3 DAYS)
     Route: 048
  3. PREMARIN [Suspect]
     Active Substance: ESTROGENS, CONJUGATED
     Dosage: 0.65 MG, ALTERNATE DAY
     Route: 048
  4. PREMARIN [Suspect]
     Active Substance: ESTROGENS, CONJUGATED
     Dosage: 0.625 MG, ALTERNATE DAY
     Dates: start: 2016, end: 2020
  5. PREMARIN [Suspect]
     Active Substance: ESTROGENS, CONJUGATED
     Dosage: 0.625 MG, ALTERNATE DAY (TAKE 1 TABLET (0.625 MG TOTAL) BY MOUTH EVERY OTHER DAY)
     Route: 048
     Dates: start: 20191210
  6. PREMARIN [Suspect]
     Active Substance: ESTROGENS, CONJUGATED
     Dosage: 0.9 MG, ALTERNATE DAY
     Dates: start: 20210128
  7. DICLOFENAC [Concomitant]
     Active Substance: DICLOFENAC
     Indication: Arthritis
     Dosage: 75 MG, UNK

REACTIONS (8)
  - Angina pectoris [Unknown]
  - Cataract [Unknown]
  - Drug dependence [Unknown]
  - Product prescribing error [Unknown]
  - Intentional product misuse [Unknown]
  - Insomnia [Unknown]
  - Feeling abnormal [Unknown]
  - Pollakiuria [Unknown]
